FAERS Safety Report 5455703-7 (Version None)
Quarter: 2007Q3

REPORT INFORMATION
  Report Type: 
  Country: None (occurrence: None)
  Receive Date: 20070918
  Receipt Date: 20070911
  Transmission Date: 20080115
  Serious: Yes (Hospitalization, Other)
  Sender: FDA-Public Use
  Company Number: PHBS2007JP02675

PATIENT
  Age: 74 Year
  Sex: Male
  Weight: 44 kg

DRUGS (4)
  1. AREDIA [Suspect]
     Indication: MULTIPLE MYELOMA
     Dosage: 45 MG/DAY
     Route: 042
     Dates: start: 20041001, end: 20060703
  2. VINCRISTINE + ADRIAMYCIN + DEXAMETHASONE [Concomitant]
     Dosage: 3 COURSES
  3. ROAD [Concomitant]
     Dosage: 2 COURSES
  4. DECADRON [Concomitant]

REACTIONS (11)
  - FISTULA [None]
  - GENERAL ANAESTHESIA [None]
  - INFLAMMATION [None]
  - JAW OPERATION [None]
  - ORAL SURGERY [None]
  - OSTEOMYELITIS [None]
  - PAIN IN JAW [None]
  - PRIMARY SEQUESTRUM [None]
  - SEQUESTRECTOMY [None]
  - SWELLING [None]
  - TOOTH EXTRACTION [None]
